FAERS Safety Report 19477946 (Version 2)
Quarter: 2021Q3

REPORT INFORMATION
  Report Type: Spontaneous
  Country: ES (occurrence: ES)
  Receive Date: 20210630
  Receipt Date: 20210813
  Transmission Date: 20211014
  Serious: Yes (Life-Threatening, Hospitalization, Other)
  Sender: FDA-Public Use
  Company Number: ES-TAKEDA-2021TUS039003

PATIENT
  Age: 5 Year
  Sex: Female
  Weight: 23 kg

DRUGS (35)
  1. FENTANYL. [Suspect]
     Active Substance: FENTANYL
     Indication: PRODUCT USED FOR UNKNOWN INDICATION
     Dosage: 3.5 MICROGRAM/KG, Q1HR
     Route: 042
     Dates: start: 20210329, end: 20210402
  2. FENTANYL. [Suspect]
     Active Substance: FENTANYL
     Dosage: 25 MICROGRAM,PRN
     Route: 042
     Dates: start: 20210403
  3. SEVOFLURANE. [Suspect]
     Active Substance: SEVOFLURANE
     Dosage: 10 MILLILITER, Q1HR
     Route: 048
     Dates: start: 20210403, end: 20210407
  4. EPINEPHRINE. [Concomitant]
     Active Substance: EPINEPHRINE
     Dosage: UNK
     Route: 065
  5. ROCURONIUM [Concomitant]
     Active Substance: ROCURONIUM BROMIDE
     Dosage: 15 MILLIGRAM, PRN
     Route: 065
     Dates: start: 20210329, end: 20210404
  6. ACETAZOLAMIDE. [Concomitant]
     Active Substance: ACETAZOLAMIDE
     Indication: UPPER AIRWAY OBSTRUCTION
     Dosage: 120 MILLIGRAM,BID
     Route: 042
     Dates: start: 20210331, end: 20210403
  7. ACETAMINOPHEN. [Concomitant]
     Active Substance: ACETAMINOPHEN
     Indication: SEDATION
     Dosage: 15 MILLIGRAM, PRN
     Route: 042
     Dates: start: 20210329, end: 20210404
  8. REMIFENTANIL HYDROCHLORIDE. [Suspect]
     Active Substance: REMIFENTANIL HYDROCHLORIDE
     Dosage: 0.5 MCG/KG CONTINUOUS/MIN
     Route: 042
     Dates: start: 20210405, end: 20210407
  9. MOVANTIK [Suspect]
     Active Substance: NALOXEGOL OXALATE
     Dosage: 2 DOSAGE FORM
     Route: 048
  10. MOVANTIK [Suspect]
     Active Substance: NALOXEGOL OXALATE
     Dosage: UNK
     Route: 048
  11. SEVOFLURANE. [Suspect]
     Active Substance: SEVOFLURANE
     Dosage: 0.2 MILLILITER, PRN
     Route: 048
     Dates: start: 20210403
  12. MACROGOL [Concomitant]
     Active Substance: POLYETHYLENE GLYCOLS
     Indication: CONSTIPATION
     Dosage: 6.9 GRAM, 3X/DAY
     Route: 065
     Dates: start: 20210408
  13. ONDANSETRON [Concomitant]
     Active Substance: ONDANSETRON
     Indication: PROPHYLAXIS
     Dosage: 4 MILLIGRAM, PRN
     Route: 042
     Dates: start: 20210403
  14. DEXAMETHASONE. [Concomitant]
     Active Substance: DEXAMETHASONE
     Dosage: 4 MILLIGRAM, 3X/DAY
     Route: 065
     Dates: start: 20210404
  15. DEXMEDETOMIDINE. [Suspect]
     Active Substance: DEXMEDETOMIDINE
     Indication: PRODUCT USED FOR UNKNOWN INDICATION
     Dosage: UNK
     Route: 065
  16. KETAMINE [Suspect]
     Active Substance: KETAMINE
     Dosage: 3.8 MG/KG, Q1HR
     Route: 042
     Dates: start: 20210402, end: 20210403
  17. AMOXICILLIN+CLAVULANIC ACID [Concomitant]
     Active Substance: AMOXICILLIN\CLAVULANIC ACID
     Indication: PROPHYLAXIS
     Dosage: 600 MILLIGRAM, 4X/DAY
     Route: 042
     Dates: start: 20210403
  18. BUDESONIDE. [Concomitant]
     Active Substance: BUDESONIDE
     Indication: UPPER AIRWAY OBSTRUCTION
     Dosage: 2 MILLIGRAM, ONCE
     Route: 065
     Dates: start: 20210403, end: 20210403
  19. FUROSEMIDE. [Concomitant]
     Active Substance: FUROSEMIDE
     Indication: FLUID OVERLOAD
     Dosage: 5 MILLIGRAM, TID
     Route: 065
     Dates: start: 20210331
  20. ACETAMINOPHEN. [Concomitant]
     Active Substance: ACETAMINOPHEN
     Indication: ANALGESIC THERAPY
     Dosage: 350 MILLIGRAM,QID
     Route: 042
     Dates: start: 20210329
  21. FENTANYL. [Suspect]
     Active Substance: FENTANYL
     Dosage: 2.5 MICROGRAM/KG, Q1HR
     Route: 042
     Dates: start: 20210403, end: 20210405
  22. FENTANYL. [Suspect]
     Active Substance: FENTANYL
     Dosage: 30 MICROGRAM, PRN
     Route: 042
     Dates: start: 20210329, end: 20210402
  23. REMIFENTANIL HYDROCHLORIDE. [Suspect]
     Active Substance: REMIFENTANIL HYDROCHLORIDE
     Indication: WITHDRAWAL SYNDROME
     Dosage: 5 MILLIGRAM, PRN
     Route: 042
     Dates: start: 20210408, end: 20210411
  24. KETAMINE [Suspect]
     Active Substance: KETAMINE
     Dosage: 1.3 MICROGRAM/KG, Q1HR
     Route: 042
     Dates: start: 20210330
  25. RANITIDINE. [Concomitant]
     Active Substance: RANITIDINE
     Dosage: 25 MILLIGRAM, QID
     Route: 042
     Dates: start: 20210329
  26. CISATRACURIUM. [Concomitant]
     Active Substance: CISATRACURIUM
     Indication: SEDATION
     Dosage: 3 MICROGRAM/KG, CONTINUOUS/MIN
     Route: 042
     Dates: start: 20210329, end: 20210404
  27. ONDANSETRON [Concomitant]
     Active Substance: ONDANSETRON
     Indication: FEEDING INTOLERANCE
     Dosage: 25 MILLIGRAM,QID
     Route: 042
     Dates: start: 20210329
  28. ROCURONIUM [Concomitant]
     Active Substance: ROCURONIUM BROMIDE
     Indication: UPPER AIRWAY OBSTRUCTION
     Dosage: 7 MILLIGRAM,PRN
     Route: 042
     Dates: start: 20210403, end: 20210404
  29. ACETAZOLAMIDE. [Concomitant]
     Active Substance: ACETAZOLAMIDE
     Indication: FISTULA
     Dosage: 5 MILLIGRAM, PRN
     Route: 042
     Dates: start: 20210403, end: 20210403
  30. PROPOFOL. [Suspect]
     Active Substance: PROPOFOL
     Indication: PRODUCT USED FOR UNKNOWN INDICATION
     Dosage: 20 MILLIGRAM, PRN
     Route: 042
     Dates: start: 20210401, end: 20210403
  31. MOVANTIK [Suspect]
     Active Substance: NALOXEGOL OXALATE
     Indication: PRODUCT USED FOR UNKNOWN INDICATION
     Dosage: 2 DOSAGE FORM
     Route: 048
  32. SEVOFLURANE. [Suspect]
     Active Substance: SEVOFLURANE
     Indication: SEDATION
     Dosage: 0.15 MICROGRAM/KG, CONTINUOUS/MIN
     Route: 048
     Dates: start: 20210405, end: 20210407
  33. AMOXICILLIN+CLAVULANIC ACID [Concomitant]
     Active Substance: AMOXICILLIN\CLAVULANIC ACID
     Dosage: 575 MILLIGRAM, 3X/DAY
     Route: 042
     Dates: start: 20210330, end: 20210403
  34. CLORAZEPATE [Suspect]
     Active Substance: CLORAZEPATE DIPOTASSIUM
     Indication: PRODUCT USED FOR UNKNOWN INDICATION
     Dosage: UNK
     Route: 065
  35. KETAMINE [Suspect]
     Active Substance: KETAMINE
     Indication: SEDATION
     Dosage: 25 MILLIGRAM,PRN
     Route: 042
     Dates: start: 20210402, end: 20210403

REACTIONS (3)
  - Laryngeal obstruction [Recovered/Resolved]
  - Withdrawal syndrome [Recovered/Resolved]
  - Off label use [Unknown]

NARRATIVE: CASE EVENT DATE: 20210403
